FAERS Safety Report 8074479-0 (Version None)
Quarter: 2012Q1

REPORT INFORMATION
  Report Type: 
  Country: None (occurrence: None)
  Receive Date: 20120126
  Receipt Date: 20120123
  Transmission Date: 20120608
  Serious: Yes (Death, Life-Threatening, Hospitalization)
  Sender: FDA-Public Use
  Company Number: JP-CELGENEUS-087-50794-11053388

PATIENT
  Sex: Male
  Weight: 62 kg

DRUGS (19)
  1. VIDAZA [Suspect]
     Dosage: 75 MILLIGRAM/SQ. METER
     Route: 041
     Dates: start: 20110502, end: 20110508
  2. VFEND [Concomitant]
     Indication: PROPHYLAXIS
     Route: 065
  3. OMEPRAZOLE [Concomitant]
     Route: 065
  4. MAXIPIME [Concomitant]
     Route: 065
     Dates: start: 20110515, end: 20110518
  5. SOLU-CORTEF [Concomitant]
     Route: 065
  6. PENLEIV [Concomitant]
     Route: 065
     Dates: start: 20110518, end: 20110524
  7. VIDAZA [Suspect]
     Dosage: 75 MILLIGRAM/SQ. METER
     Route: 058
     Dates: start: 20110404, end: 20110410
  8. VERAPAMIL HCL [Concomitant]
     Route: 065
  9. ALOXI [Concomitant]
     Route: 065
  10. SANDOGLOBULIN [Concomitant]
     Route: 065
     Dates: start: 20110518, end: 20110520
  11. HUMULIN R [Concomitant]
     Route: 065
  12. GRAN [Concomitant]
     Route: 065
     Dates: start: 20110516, end: 20110522
  13. MAGNESIUM OXIDE [Concomitant]
     Route: 065
  14. PLATELETS [Concomitant]
     Route: 065
  15. EXJADE [Concomitant]
     Route: 065
  16. DORIPENEM MONOHYDRATE [Concomitant]
     Route: 065
     Dates: start: 20110515, end: 20110525
  17. AMARYL [Concomitant]
     Route: 065
     Dates: end: 20110516
  18. RED BLOOD CELLS [Concomitant]
     Route: 065
  19. SITAGLIPTIN PHOSPHATE [Concomitant]
     Route: 065
     Dates: start: 20110419, end: 20110516

REACTIONS (3)
  - MYELODYSPLASTIC SYNDROME [None]
  - FEBRILE NEUTROPENIA [None]
  - WHITE BLOOD CELL COUNT DECREASED [None]
